FAERS Safety Report 23988756 (Version 2)
Quarter: 2024Q2

REPORT INFORMATION
  Report Type: Report from Study
  Country: US (occurrence: US)
  Receive Date: 20240619
  Receipt Date: 20240620
  Transmission Date: 20240716
  Serious: Yes (Hospitalization, Other)
  Sender: FDA-Public Use
  Company Number: US-ABBVIE-5804168

PATIENT
  Age: 68 Year
  Sex: Male
  Weight: 53.523 kg

DRUGS (2)
  1. SKYRIZI [Suspect]
     Active Substance: RISANKIZUMAB-RZAA
     Indication: Crohn^s disease
     Route: 058
     Dates: start: 20230724, end: 202404
  2. TYLENOL [Concomitant]
     Active Substance: ACETAMINOPHEN
     Indication: Arthritis
     Route: 065

REACTIONS (4)
  - Intestinal obstruction [Unknown]
  - Platelet count increased [Not Recovered/Not Resolved]
  - Fall [Unknown]
  - Bone contusion [Unknown]

NARRATIVE: CASE EVENT DATE: 20240612
